FAERS Safety Report 13551619 (Version 1)
Quarter: 2017Q2

REPORT INFORMATION
  Report Type: Spontaneous
  Country: CH (occurrence: CH)
  Receive Date: 20170516
  Receipt Date: 20170516
  Transmission Date: 20170830
  Serious: Yes (Hospitalization)
  Sender: FDA-Public Use
  Company Number: CH-TEVA-766486ISR

PATIENT
  Age: 69 Year
  Sex: Female

DRUGS (8)
  1. XARELTO [Concomitant]
     Active Substance: RIVAROXABAN
     Route: 048
     Dates: start: 20170107
  2. SOTALOL MEPHA 80 TABLETTEN [Suspect]
     Active Substance: SOTALOL HYDROCHLORIDE
     Dosage: DOSAGE ACCORDING TO PLAN 0-1-1-1
     Route: 048
  3. ZYPREXA [Suspect]
     Active Substance: OLANZAPINE
     Route: 048
  4. ZANIDIP [Suspect]
     Active Substance: LERCANIDIPINE HYDROCHLORIDE
     Route: 048
     Dates: end: 20170409
  5. NEURONTIN [Suspect]
     Active Substance: GABAPENTIN
     Route: 048
  6. TRITTICO 100 MG TABLETTEN [Suspect]
     Active Substance: TRAZODONE HYDROCHLORIDE
     Route: 048
  7. SERESTA TABLETTEN [Suspect]
     Active Substance: OXAZEPAM
     Route: 048
  8. ASPIRIN CARDIO 100 FILMTABLETTEN [Concomitant]
     Active Substance: ASPIRIN
     Route: 048
     Dates: end: 20170414

REACTIONS (4)
  - Dizziness [Recovered/Resolved]
  - Bradycardia [Recovered/Resolved]
  - Orthostatic hypotension [Recovered/Resolved]
  - Malaise [Recovered/Resolved]

NARRATIVE: CASE EVENT DATE: 20170409
